FAERS Safety Report 6807537-6 (Version None)
Quarter: 2010Q2

REPORT INFORMATION
  Report Type: 
  Country: None (occurrence: None)
  Receive Date: 20100629
  Receipt Date: 20081008
  Transmission Date: 20101027
  Serious: Yes (Other)
  Sender: FDA-Public Use
  Company Number: US-PFIZER INC-2008084799

PATIENT
  Sex: Female

DRUGS (4)
  1. ZYVOX [Suspect]
     Indication: SKIN INFECTION
     Route: 042
     Dates: start: 20080926
  2. ZYVOX [Suspect]
     Indication: SKIN INFECTION
     Route: 048
  3. PREDNISONE [Concomitant]
     Dates: start: 20080926, end: 20080930
  4. VICODIN [Concomitant]

REACTIONS (4)
  - BLOOD URINE PRESENT [None]
  - CONVULSION [None]
  - PYREXIA [None]
  - VULVOVAGINAL MYCOTIC INFECTION [None]
